FAERS Safety Report 8165066-4 (Version None)
Quarter: 2012Q1

REPORT INFORMATION
  Report Type: 
  Country: None (occurrence: None)
  Receive Date: 20120227
  Receipt Date: 20120217
  Transmission Date: 20120608
  Serious: No
  Sender: FDA-Public Use
  Company Number: US-BIOGENIDEC-2012BI006539

PATIENT
  Sex: Female

DRUGS (2)
  1. AVONEX [Suspect]
     Indication: MULTIPLE SCLEROSIS
     Route: 030
     Dates: start: 20010120, end: 20030101
  2. AVONEX [Suspect]
     Route: 030
     Dates: start: 20030101

REACTIONS (10)
  - VERTIGO [None]
  - STRESS [None]
  - LOSS OF CONTROL OF LEGS [None]
  - MENOPAUSAL SYMPTOMS [None]
  - INSOMNIA [None]
  - BALANCE DISORDER [None]
  - VISION BLURRED [None]
  - CONFUSIONAL STATE [None]
  - MENTAL IMPAIRMENT [None]
  - DEPRESSED MOOD [None]
